FAERS Safety Report 8786438 (Version 1)
Quarter: 2012Q4

REPORT INFORMATION
  Report Type: 
  Country: US (occurrence: US)
  Receive Date: 20120914
  Receipt Date: 20120914
  Transmission Date: 20130627
  Serious: Yes (Other)
  Sender: FDA-Public Use
  Company Number: US-PFIZER INC-2012223296

PATIENT
  Age: 37 Year
  Sex: Female
  Weight: 73 kg

DRUGS (5)
  1. PREMARIN [Suspect]
     Indication: HORMONE REPLACEMENT THERAPY
     Dosage: 0.625 mg, 1x/day
     Route: 048
     Dates: start: 1987
  2. PREMARIN [Suspect]
     Dosage: UNK
     Route: 048
  3. XANAX [Suspect]
     Indication: ANXIETY
     Dosage: 0.5 mg, 4x/day
     Route: 048
  4. XANAX [Suspect]
     Dosage: UNK
     Route: 048
  5. CRESTOR [Concomitant]
     Dosage: UNK

REACTIONS (1)
  - Basedow^s disease [Unknown]
